FAERS Safety Report 5018230-7 (Version None)
Quarter: 2006Q2

REPORT INFORMATION
  Report Type: 
  Country: None (occurrence: None)
  Receive Date: 20060530
  Receipt Date: 20060515
  Transmission Date: 20061013
  Serious: Yes (Other)
  Sender: FDA-Public Use
  Company Number: 2006063979

PATIENT
  Age: 14 Year
  Sex: Male

DRUGS (3)
  1. EPELIN  KAPSEALS [Suspect]
     Indication: CONVULSION
     Dosage: 300 MG (100 MG, 3 IN 1 D), ORAL
     Route: 048
  2. DEPAKOTE [Concomitant]
  3. GARDENAL SODIUM (PHENOBARBITAL SODIUM) [Concomitant]

REACTIONS (2)
  - CONVULSION [None]
  - DRUG INEFFECTIVE [None]
